FAERS Safety Report 9191112 (Version 1)
Quarter: 2013Q1

REPORT INFORMATION
  Report Type: Spontaneous
  Country: ES (occurrence: ES)
  Receive Date: 20130326
  Receipt Date: 20130326
  Transmission Date: 20140127
  Serious: Yes (Hospitalization, Other)
  Sender: FDA-Public Use
  Company Number: ES-ELI_LILLY_AND_COMPANY-ES201303008405

PATIENT
  Age: 79 None
  Sex: Female

DRUGS (18)
  1. FORSTEO [Suspect]
     Indication: OSTEOPOROSIS
     Dosage: 20 UG, QD
     Route: 058
     Dates: start: 20101123
  2. FORSTEO [Suspect]
     Dosage: 20 UG, QD
     Route: 058
     Dates: start: 20110302
  3. DISGREN [Concomitant]
     Indication: CEREBRAL THROMBOSIS
     Dosage: UNK, QD
     Route: 048
     Dates: start: 2009
  4. ENALAPRIL [Concomitant]
     Indication: HYPERTENSION
     Dosage: UNK
     Route: 048
     Dates: end: 201103
  5. NITRADISC [Concomitant]
     Indication: PROPHYLAXIS
     Dosage: UNK, QD
     Route: 061
     Dates: start: 201103
  6. ARANESP [Concomitant]
     Dosage: UNK, WEEKLY (1/W)
     Route: 058
     Dates: start: 201103
  7. CLEXANE [Concomitant]
     Indication: PROPHYLAXIS
     Dosage: UNK, QD
     Route: 058
     Dates: start: 201103
  8. PREDNISON [Concomitant]
     Indication: RHEUMATOID ARTHRITIS
     Dosage: 10 MG, QD
     Route: 048
     Dates: start: 201103
  9. DECORTIN [Concomitant]
     Indication: RHEUMATOID ARTHRITIS
     Dosage: 10 MG, QD
     Route: 048
     Dates: end: 201103
  10. ZALDIAR [Concomitant]
     Indication: PAIN
     Dosage: UNK
     Route: 048
     Dates: end: 201103
  11. PARACETAMOL [Concomitant]
     Indication: PAIN
     Dosage: 1 G, BID
     Route: 048
     Dates: start: 201103
  12. DURAGESIC [Concomitant]
     Indication: PAIN
     Dosage: UNK, OTHER
     Route: 061
     Dates: start: 201103
  13. DEPRAX [Concomitant]
     Indication: RELAXATION THERAPY
     Dosage: 0.5 DF, QD
     Route: 048
     Dates: start: 201103
  14. KEPRA [Concomitant]
     Indication: EPILEPSY
     Dosage: UNK, BID
     Route: 048
     Dates: start: 201103
  15. OMEPRAZOL [Concomitant]
     Indication: PROPHYLAXIS
     Dosage: UNK, QD
     Route: 048
  16. SEGURIL [Concomitant]
     Indication: HYPERTENSION
     Dosage: 40 MG, BID
     Route: 048
  17. AMLODIPINE BESILATE [Concomitant]
     Dosage: UNK
     Route: 048
     Dates: start: 201103
  18. IDAPTAN [Concomitant]
     Indication: VERTIGO
     Dosage: UNK

REACTIONS (5)
  - Pulmonary infarction [Unknown]
  - Pulmonary embolism [Recovering/Resolving]
  - Sepsis [Unknown]
  - Urinary tract infection [Unknown]
  - Anaemia [Unknown]
